FAERS Safety Report 6551348-6 (Version None)
Quarter: 2010Q1

REPORT INFORMATION
  Report Type: 
  Country: None (occurrence: None)
  Receive Date: 20100120
  Receipt Date: 20100114
  Transmission Date: 20100710
  Serious: Yes (Hospitalization)
  Sender: FDA-Public Use
  Company Number: 2009SP039913

PATIENT
  Age: 34 Year
  Sex: Female

DRUGS (2)
  1. NASONEX [Suspect]
     Indication: COUGH
     Dosage: 2 DF; BID; NAS
     Route: 045
     Dates: start: 20091120
  2. YASMIN [Suspect]
     Indication: CONTRACEPTION

REACTIONS (1)
  - PANCREATITIS ACUTE [None]
